FAERS Safety Report 15374822 (Version 2)
Quarter: 2018Q3

REPORT INFORMATION
  Report Type: Spontaneous
  Country: US (occurrence: US)
  Receive Date: 20180912
  Receipt Date: 20180919
  Transmission Date: 20181010
  Serious: Yes (Other)
  Sender: FDA-Public Use
  Company Number: US-TEVA-2018-US-952344

PATIENT
  Age: 81 Year
  Sex: Female

DRUGS (2)
  1. PROAIR HFA [Concomitant]
     Active Substance: ALBUTEROL SULFATE
  2. QVAR REDIHALER [Suspect]
     Active Substance: BECLOMETHASONE DIPROPIONATE
     Dosage: 2 PUFFS DAILY
     Route: 065
     Dates: start: 201808

REACTIONS (5)
  - Bipolar disorder [Unknown]
  - Throat irritation [Unknown]
  - Malaise [Unknown]
  - Choking [Unknown]
  - Product physical issue [Unknown]
